FAERS Safety Report 25061133 (Version 1)
Quarter: 2025Q1

REPORT INFORMATION
  Report Type: Spontaneous
  Country: US (occurrence: US)
  Receive Date: 20250310
  Receipt Date: 20250310
  Transmission Date: 20250409
  Serious: No
  Sender: JOHNSON AND JOHNSON
  Company Number: US-JNJFOC-20250222808

PATIENT
  Sex: Female

DRUGS (6)
  1. TOPAMAX [Suspect]
     Active Substance: TOPIRAMATE
     Indication: Product used for unknown indication
     Route: 048
  2. BACLOFEN [Concomitant]
     Active Substance: BACLOFEN
  3. BENADRYL ALLERGY NIGHTTIME [Concomitant]
  4. BUSPIRONE [Concomitant]
     Active Substance: BUSPIRONE HYDROCHLORIDE
  5. CELECOXIB [Concomitant]
     Active Substance: CELECOXIB
  6. REBIF REBIDOSE [Concomitant]
     Active Substance: INTERFERON BETA-1A

REACTIONS (1)
  - Drug ineffective [Unknown]
